FAERS Safety Report 6573627-9 (Version None)
Quarter: 2010Q1

REPORT INFORMATION
  Report Type: 
  Country: None (occurrence: None)
  Receive Date: 20100208
  Receipt Date: 20100127
  Transmission Date: 20100710
  Serious: Yes (Hospitalization)
  Sender: FDA-Public Use
  Company Number: SE-ROCHE-683206

PATIENT

DRUGS (3)
  1. CAPECITABINE [Suspect]
     Indication: DRUG USE FOR UNKNOWN INDICATION
     Dosage: CYCLE: 2, STUDY HAS BEEN COMPLETED. AT THE TIME OF  REPORT THE THERAPY WAS ONGOING
     Route: 065
  2. PACLITAXEL [Suspect]
     Indication: DRUG USE FOR UNKNOWN INDICATION
     Dosage: CYCLE 2. STUDY HAS BEEN COMPLETED. AT THE TIME OF REPORT THE THERAPY WAS ONGOING
     Route: 065
  3. EPIRUBICIN [Suspect]
     Indication: DRUG USE FOR UNKNOWN INDICATION
     Dosage: CYCLE: 2, STUDY HAS BEEN COMPLETED. AT THE TIME OF  REPORT THE THERAPY WAS ONGOING
     Route: 065

REACTIONS (2)
  - BACK PAIN [None]
  - C-REACTIVE PROTEIN INCREASED [None]
